FAERS Safety Report 9319297 (Version 2)
Quarter: 2013Q3

REPORT INFORMATION
  Report Type: Spontaneous
  Country: US (occurrence: US)
  Receive Date: 20130530
  Receipt Date: 20130717
  Transmission Date: 20140515
  Serious: Yes (Other)
  Sender: FDA-Public Use
  Company Number: US-INCYTE CORPORATION-2013IN001046

PATIENT
  Age: 85 Year
  Sex: Male

DRUGS (3)
  1. JAKAFI [Suspect]
     Indication: MYELOFIBROSIS
     Dosage: 5 MG, BID
     Route: 048
     Dates: start: 201212, end: 201305
  2. JAKAFI [Suspect]
     Indication: CHRONIC LYMPHOCYTIC LEUKAEMIA
  3. RITUXAN [Concomitant]
     Dosage: UNSPECIFIED
     Dates: start: 201211

REACTIONS (3)
  - Chronic lymphocytic leukaemia [Unknown]
  - Haemoglobin decreased [Unknown]
  - Drug ineffective [Unknown]
